FAERS Safety Report 12187096 (Version 1)
Quarter: 2016Q1

REPORT INFORMATION
  Report Type: Spontaneous
  Country: CA (occurrence: CA)
  Receive Date: 20160317
  Receipt Date: 20160317
  Transmission Date: 20160526
  Serious: No
  Sender: FDA-Public Use
  Company Number: CA-CANGENE-145646

PATIENT
  Age: 44 Year
  Sex: Female
  Weight: 65.7 kg

DRUGS (4)
  1. MATERNA [Concomitant]
     Active Substance: MINERALS\VITAMINS
     Indication: PREGNANCY
  2. PROMETRIUM [Concomitant]
     Active Substance: PROGESTERONE
  3. FOLIC ACID. [Concomitant]
     Active Substance: FOLIC ACID
     Indication: PREGNANCY
  4. WINRHO SDF [Suspect]
     Active Substance: HUMAN RHO(D) IMMUNE GLOBULIN
     Indication: PROPHYLAXIS AGAINST RH ISOIMMUNISATION
     Dates: start: 20150320, end: 20150320

REACTIONS (1)
  - Neurogenic shock [Recovered/Resolved]

NARRATIVE: CASE EVENT DATE: 20150320
